FAERS Safety Report 5382458-7 (Version None)
Quarter: 2007Q3

REPORT INFORMATION
  Report Type: 
  Country: None (occurrence: None)
  Receive Date: 20070710
  Receipt Date: 20070628
  Transmission Date: 20080115
  Serious: Yes (Other)
  Sender: FDA-Public Use
  Company Number: HQWYE840028JUN07

PATIENT
  Sex: Female

DRUGS (2)
  1. PANTOPRAZOLE SODIUM [Suspect]
     Indication: GASTROOESOPHAGEAL REFLUX DISEASE
     Dosage: 40 MG - FREQUENCY UNSPECIFIED
     Route: 048
     Dates: start: 20040101, end: 20070609
  2. CARDIZEM [Concomitant]
     Indication: ESSENTIAL HYPERTENSION
     Dosage: ^DF^
     Route: 048
     Dates: start: 19770101

REACTIONS (11)
  - ERYTHEMA [None]
  - EYE SWELLING [None]
  - HYPERSENSITIVITY [None]
  - JOINT SWELLING [None]
  - LACRIMATION INCREASED [None]
  - LIP SWELLING [None]
  - MASS [None]
  - PHARYNGEAL OEDEMA [None]
  - PRURITUS [None]
  - SWELLING FACE [None]
  - SWOLLEN TONGUE [None]
